FAERS Safety Report 14821220 (Version 1)
Quarter: 2018Q2

REPORT INFORMATION
  Report Type: Spontaneous
  Country: DE (occurrence: DE)
  Receive Date: 20180427
  Receipt Date: 20180427
  Transmission Date: 20180711
  Serious: Yes (Hospitalization)
  Sender: FDA-Public Use
  Company Number: DE-BAXTER-2018BAX012055

PATIENT
  Age: 66 Year
  Sex: Female
  Weight: 60.3 kg

DRUGS (7)
  1. DOXORUBICIN [Suspect]
     Active Substance: DOXORUBICIN
     Indication: PRODUCT USED FOR UNKNOWN INDICATION
     Dosage: AS PER REGIMEN, INJECTION/ INFUSION SOLUTION
     Route: 042
  2. VINCRISTINE [Suspect]
     Active Substance: VINCRISTINE
     Indication: PRODUCT USED FOR UNKNOWN INDICATION
     Dosage: AS PER REGIMEN, INJECTION/ INFUSION SOLUTION
     Route: 042
  3. KALIUM [Concomitant]
     Active Substance: POTASSIUM CHLORIDE
     Indication: PRODUCT USED FOR UNKNOWN INDICATION
     Dosage: 20 MMOL, 2-2-2-0 BAG
     Route: 048
  4. ENDOXAN 1G [Suspect]
     Active Substance: CYCLOPHOSPHAMIDE
     Indication: PRODUCT USED FOR UNKNOWN INDICATION
     Dosage: AS PER REGIMEN, INJECTION/ INFUSION SOLUTION
     Route: 042
  5. PREDNISOLON [Suspect]
     Active Substance: PREDNISOLONE
     Indication: PRODUCT USED FOR UNKNOWN INDICATION
     Dosage: 100 MG, AS PER REGIMEN, TABLETS
     Route: 048
  6. RITUXIMAB. [Suspect]
     Active Substance: RITUXIMAB
     Indication: PRODUCT USED FOR UNKNOWN INDICATION
     Dosage: AS PER REGIMEN, INJECTION/ INFUSION SOLUTION
     Route: 042
  7. HYDROCHLOROTHIAZIDE. [Concomitant]
     Active Substance: HYDROCHLOROTHIAZIDE
     Indication: PRODUCT USED FOR UNKNOWN INDICATION
     Dosage: 25 MG, 1-0-0-0, TABLETS
     Route: 048

REACTIONS (6)
  - Abdominal pain upper [Unknown]
  - Febrile bone marrow aplasia [Unknown]
  - Nausea [Unknown]
  - Hyponatraemia [Unknown]
  - Pyrexia [Unknown]
  - Mantle cell lymphoma [Unknown]
